FAERS Safety Report 5331940-7 (Version None)
Quarter: 2007Q2

REPORT INFORMATION
  Report Type: 
  Country: None (occurrence: None)
  Receive Date: 20070523
  Receipt Date: 20070511
  Transmission Date: 20071010
  Serious: Yes (Death)
  Sender: FDA-Public Use
  Company Number: JP-SANOFI-SYNTHELABO-A01200705287

PATIENT
  Age: 72 Year
  Sex: Male

DRUGS (6)
  1. DEXAMETHASONE SODIUM PHOSPHATE [Concomitant]
     Indication: PREMEDICATION
     Dosage: UNK
     Route: 041
     Dates: start: 20070507, end: 20070507
  2. GRANISETRON  HCL [Concomitant]
     Indication: PREMEDICATION
     Dosage: UNK
     Route: 041
     Dates: start: 20070507, end: 20070507
  3. FLUOROURACIL [Concomitant]
     Route: 040
     Dates: start: 20070507, end: 20070507
  4. FLUOROURACIL [Concomitant]
     Route: 041
     Dates: start: 20070507, end: 20070507
  5. LEUCOVORIN CALCIUM [Concomitant]
     Route: 041
     Dates: start: 20070507, end: 20070507
  6. OXALIPLATIN [Suspect]
     Indication: COLON CANCER
     Route: 041
     Dates: start: 20070507, end: 20070507

REACTIONS (1)
  - GASTROINTESTINAL HAEMORRHAGE [None]
